FAERS Safety Report 10653153 (Version 4)
Quarter: 2015Q1

REPORT INFORMATION
  Report Type: Spontaneous
  Country: CA (occurrence: CA)
  Receive Date: 20141215
  Receipt Date: 20150113
  Transmission Date: 20150720
  Serious: Yes (Death, Other)
  Sender: FDA-Public Use
  Company Number: CA-GSKJP-KK201312570GSK1550188SC003

PATIENT
  Age: 57 Year
  Sex: Female
  Weight: 78 kg

DRUGS (2)
  1. BENLYSTA [Suspect]
     Active Substance: BELIMUMAB
     Indication: SYSTEMIC LUPUS ERYTHEMATOSUS
     Dosage: AT WEEK 0, 2, 4 AND EVERY 4 WEEKS
     Route: 042
     Dates: start: 20130606
  2. BENLYSTA [Suspect]
     Active Substance: BELIMUMAB
     Dosage: 790 MG, UNK
     Route: 042

REACTIONS (17)
  - Cardiac arrest [Fatal]
  - Chills [Unknown]
  - Cough [Recovered/Resolved]
  - Malaise [Unknown]
  - Pneumonia [Fatal]
  - Sinusitis [Unknown]
  - Diarrhoea [Unknown]
  - Mental disorder [Unknown]
  - Nasal congestion [Unknown]
  - Nasopharyngitis [Recovered/Resolved]
  - Urinary tract infection [Unknown]
  - Lung infection [Unknown]
  - Infection [Unknown]
  - Rhinorrhoea [Recovered/Resolved]
  - Chest discomfort [Unknown]
  - Organ failure [Unknown]
  - Fatigue [Unknown]

NARRATIVE: CASE EVENT DATE: 20141224
